FAERS Safety Report 14267627 (Version 1)
Quarter: 2017Q4

REPORT INFORMATION
  Report Type: Spontaneous
  Country: US (occurrence: US)
  Receive Date: 20171210
  Receipt Date: 20171210
  Transmission Date: 20180321
  Serious: Yes (Disabling, Other)
  Sender: FDA-Public Use
  Company Number: None

PATIENT
  Age: 28 Year
  Sex: Female
  Weight: 63 kg

DRUGS (5)
  1. KLONOPIN [Concomitant]
     Active Substance: CLONAZEPAM
  2. LEVAQUIN [Suspect]
     Active Substance: LEVOFLOXACIN
     Indication: PNEUMONIA
     Dosage: ?          QUANTITY:1 TABLET(S);?
     Route: 048
     Dates: start: 20170607, end: 20170616
  3. PROTONIX [Concomitant]
     Active Substance: PANTOPRAZOLE SODIUM
  4. PROBIOTIC [Concomitant]
     Active Substance: PROBIOTICS NOS
  5. IRON WITH VITAMIN C [Concomitant]

REACTIONS (16)
  - Pharyngeal inflammation [None]
  - Dysphagia [None]
  - Viral infection [None]
  - Toxicity to various agents [None]
  - Gastrooesophageal reflux disease [None]
  - Fear [None]
  - Throat tightness [None]
  - Panic reaction [None]
  - Muscle tightness [None]
  - Benign neoplasm of thyroid gland [None]
  - Multiple allergies [None]
  - Oesophageal spasm [None]
  - Thyroiditis [None]
  - Frustration tolerance decreased [None]
  - Weight decreased [None]
  - Dysbacteriosis [None]

NARRATIVE: CASE EVENT DATE: 20170823
